FAERS Safety Report 18793405 (Version 1)
Quarter: 2021Q1

REPORT INFORMATION
  Report Type: Spontaneous
  Country: US (occurrence: US)
  Receive Date: 20210126
  Receipt Date: 20210126
  Transmission Date: 20210419
  Serious: Yes (Other)
  Sender: FDA-Public Use
  Company Number: None

PATIENT
  Age: 50 Year
  Sex: Female
  Weight: 58.5 kg

DRUGS (2)
  1. 5% FLUOROURACIL TOPICAL CREAM USP [Suspect]
     Active Substance: FLUOROURACIL
     Indication: ACTINIC KERATOSIS
     Dosage: ?          QUANTITY:1 TUBE;?
     Route: 061
     Dates: start: 20200217, end: 20200307
  2. TRETINOIN CREAM USP 0.1% [Suspect]
     Active Substance: TRETINOIN
     Indication: ACNE
     Dosage: ?          QUANTITY:1 TUBE;?
     Route: 061

REACTIONS (3)
  - Skin irritation [None]
  - Accidental exposure to product [None]
  - Pruritus [None]

NARRATIVE: CASE EVENT DATE: 20210125
